FAERS Safety Report 15298730 (Version 2)
Quarter: 2018Q3

REPORT INFORMATION
  Report Type: Report from Study
  Country: None (occurrence: TR)
  Receive Date: 20180820
  Receipt Date: 20180823
  Transmission Date: 20181010
  Serious: Yes (Hospitalization)
  Sender: FDA-Public Use
  Company Number: TR-ABBVIE-18S-161-2454011-00

PATIENT
  Age: 67 Year
  Sex: Female

DRUGS (1)
  1. DUODOPA [Suspect]
     Active Substance: CARBIDOPA\LEVODOPA
     Indication: PARKINSON^S DISEASE
     Dosage: MORNING DOSE: 9.00 ML??CONTINUING DOSE: 2.00 ML??EXTRA DOSE: 2.00 ML
     Route: 050
     Dates: start: 20160427, end: 20180813

REACTIONS (3)
  - Bradykinesia [Not Recovered/Not Resolved]
  - Brain operation [Recovered/Resolved]
  - Device allergy [Recovered/Resolved]

NARRATIVE: CASE EVENT DATE: 201801
